FAERS Safety Report 8508661-2 (Version None)
Quarter: 2012Q3

REPORT INFORMATION
  Report Type: 
  Country: None (occurrence: None)
  Receive Date: 20120713
  Receipt Date: 20120710
  Transmission Date: 20120928
  Serious: Yes (Other)
  Sender: FDA-Public Use
  Company Number: US-PFIZER INC-2012165623

PATIENT
  Sex: Female
  Weight: 49 kg

DRUGS (7)
  1. LIPITOR [Suspect]
     Dosage: 50 MG, 1X/DAY
     Route: 048
     Dates: end: 20111101
  2. ATENOLOL [Concomitant]
     Dosage: 25 MG, 2X/DAY
  3. LIPITOR [Suspect]
     Indication: BLOOD CHOLESTEROL INCREASED
     Dosage: 40 MG, 1X/DAY
     Route: 048
  4. DYAZIDE [Concomitant]
     Dosage: 25 MG, UNK
  5. CARDIZEM [Concomitant]
     Dosage: 180 MG, UNK
  6. CRESTOR [Suspect]
     Indication: BLOOD CHOLESTEROL INCREASED
     Dosage: 20 MG, UNK
  7. ACETYLSALICYLIC ACID [Concomitant]
     Dosage: 81 MG, UNK

REACTIONS (5)
  - PAIN IN EXTREMITY [None]
  - DRUG INEFFECTIVE [None]
  - LOW DENSITY LIPOPROTEIN ABNORMAL [None]
  - MYALGIA [None]
  - CARDIAC DISORDER [None]
